FAERS Safety Report 8321099-6 (Version None)
Quarter: 2012Q2

REPORT INFORMATION
  Report Type: 
  Country: None (occurrence: None)
  Receive Date: 20120430
  Receipt Date: 20120423
  Transmission Date: 20120825
  Serious: Yes (Other)
  Sender: FDA-Public Use
  Company Number: CA-JNJFOC-20110207321

PATIENT
  Age: 29 Year
  Sex: Male
  Weight: 72.58 kg

DRUGS (2)
  1. NICORETTE [Suspect]
     Indication: SMOKING CESSATION THERAPY
     Dosage: MORE THAN RECOMMENDED DOSE
     Route: 055
  2. PAXIL [Concomitant]
     Indication: ANXIETY
     Dosage: 1/2 TABLET
     Route: 065

REACTIONS (5)
  - INCORRECT DOSE ADMINISTERED [None]
  - INCORRECT DRUG ADMINISTRATION DURATION [None]
  - DEPENDENCE [None]
  - PRODUCT QUALITY ISSUE [None]
  - DEVICE MALFUNCTION [None]
